FAERS Safety Report 10370136 (Version 1)
Quarter: 2014Q3

REPORT INFORMATION
  Report Type: Report from Study
  Country: CA (occurrence: CA)
  Receive Date: 20140808
  Receipt Date: 20140808
  Transmission Date: 20150326
  Serious: Yes (Other)
  Sender: FDA-Public Use
  Company Number: CA-BRISTOL-MYERS SQUIBB COMPANY-21281795

PATIENT
  Age: 70 Year
  Sex: Male

DRUGS (7)
  1. CENTRUM [Concomitant]
     Active Substance: VITAMINS
  2. VITAMIN D3 [Concomitant]
     Active Substance: CHOLECALCIFEROL
  3. ACETAMINOPHEN + CODEINE [Concomitant]
  4. CALCIUM CARBONATE. [Concomitant]
     Active Substance: CALCIUM CARBONATE
  5. ORENCIA [Suspect]
     Active Substance: ABATACEPT
     Indication: RHEUMATOID ARTHRITIS
     Dosage: INTERRUPTED ON:DEC13
     Route: 042
     Dates: start: 20120613
  6. PREDNISONE. [Concomitant]
     Active Substance: PREDNISONE
  7. NAPROSYN [Concomitant]
     Active Substance: NAPROXEN

REACTIONS (2)
  - Wound [Unknown]
  - Toe amputation [Unknown]
